FAERS Safety Report 26087173 (Version 1)
Quarter: 2025Q4

REPORT INFORMATION
  Report Type: Report from Study
  Country: US (occurrence: US)
  Receive Date: 20251125
  Receipt Date: 20251125
  Transmission Date: 20260118
  Serious: Yes (Other)
  Sender: ROCHE
  Company Number: US-ROCHE-10000442030

PATIENT
  Age: 17 Year
  Sex: Male

DRUGS (2)
  1. XOLAIR PFS [Suspect]
     Active Substance: OMALIZUMAB
     Indication: Food allergy
     Dosage: INJECT 450MG SUBCUTANEOUSLY EVERY 2 WEEK(S) (USE 1-300MG SYRINGE AND 1-150MG SYRINGE FOR EACH DOSE)
     Route: 058
  2. XOLAIR PFS [Suspect]
     Active Substance: OMALIZUMAB

REACTIONS (2)
  - Tuberculosis [Unknown]
  - Immunodeficiency [Unknown]
